FAERS Safety Report 9586615 (Version 1)
Quarter: 2013Q4

REPORT INFORMATION
  Report Type: Spontaneous
  Country: US (occurrence: US)
  Receive Date: 20131003
  Receipt Date: 20131003
  Transmission Date: 20140711
  Serious: No
  Sender: FDA-Public Use
  Company Number: US-BAYER-2013-119210

PATIENT
  Age: 80 Year
  Sex: Male
  Weight: 113 kg

DRUGS (8)
  1. ALEVE CAPLET [Suspect]
     Dosage: 1-2 DF, PRN
  2. GABAPENTIN [Concomitant]
  3. GLUCOSAMINE [GLUCOSAMINE] [Concomitant]
  4. VITAMIN E [TOCOPHEROL] [Concomitant]
  5. FISH OIL [Concomitant]
  6. GARLIC [Concomitant]
  7. SIMVASTATIN [Concomitant]
  8. AMLODIPINE BESYLATE [Concomitant]

REACTIONS (1)
  - Drug ineffective [None]
